FAERS Safety Report 7352575-0 (Version None)
Quarter: 2011Q1

REPORT INFORMATION
  Report Type: 
  Country: None (occurrence: None)
  Receive Date: 20110310
  Receipt Date: 20110310
  Transmission Date: 20110831
  Serious: Yes (Other)
  Sender: FDA-Public Use
  Company Number: None

PATIENT
  Age: 37 Year
  Sex: Male
  Weight: 130.6359 kg

DRUGS (2)
  1. TYLENOL COLD -MULTI SYMPTOM- 340 MG MCNEIL CONSUMER HEALTH CARE [Suspect]
     Indication: INFLUENZA
     Dosage: 2 GELCAPS EVERY 4 HOURS EVERY 4 HOURS PO
     Route: 048
     Dates: start: 20110214, end: 20110306
  2. TYLENOL SINUS UNKNOWN MCNEIL CONSUMER HEALTH CARE [Suspect]
     Indication: INFLUENZA
     Dosage: 2 GELCAPS EVERY 4 HOURS ALTERNATING 4 HRS PO
     Route: 048
     Dates: start: 20110214, end: 20110306

REACTIONS (7)
  - VOMITING [None]
  - WEIGHT DECREASED [None]
  - PRODUCT QUALITY ISSUE [None]
  - ABDOMINAL DISTENSION [None]
  - HEADACHE [None]
  - PAIN [None]
  - NAUSEA [None]
